FAERS Safety Report 7210255-6 (Version None)
Quarter: 2010Q4

REPORT INFORMATION
  Report Type: 
  Country: None (occurrence: None)
  Receive Date: 20101223
  Receipt Date: 20101214
  Transmission Date: 20110411
  Serious: Yes (Hospitalization)
  Sender: FDA-Public Use
  Company Number: 021728

PATIENT
  Sex: Female
  Weight: 63.5 kg

DRUGS (4)
  1. CERTOLIZUMAB [Suspect]
     Indication: CROHN'S DISEASE
     Dosage: 2 INJECTIONS SUBCUTANEOUS
     Route: 058
     Dates: start: 20100601, end: 20101201
  2. PENTASA [Concomitant]
  3. PRILOSEC [Concomitant]
  4. ENTOCORT EC [Concomitant]

REACTIONS (2)
  - HERNIA [None]
  - OPEN WOUND [None]
